FAERS Safety Report 10355456 (Version 3)
Quarter: 2014Q4

REPORT INFORMATION
  Report Type: Spontaneous
  Country: US (occurrence: US)
  Receive Date: 20140731
  Receipt Date: 20141003
  Transmission Date: 20150528
  Serious: Yes (Hospitalization, Other)
  Sender: FDA-Public Use
  Company Number: US-JNJFOC-20140714784

PATIENT
  Age: 42 Year
  Sex: Female
  Weight: 60.33 kg

DRUGS (3)
  1. TYLENOL REGULAR STRENGTH [Suspect]
     Active Substance: ACETAMINOPHEN
     Indication: ARTHRITIS
     Dosage: 3 TO 4 PILLS OF 325 MG OF TYLENOL 4 TO 5 TIMES A DAY (DOSE OF 4 TO 6 GRAMS A DAY)
     Route: 048
     Dates: start: 20100720, end: 20120720
  2. TYLENOL REGULAR STRENGTH [Suspect]
     Active Substance: ACETAMINOPHEN
     Indication: TOOTHACHE
     Dosage: 3 TO 4 PILLS OF 325 MG OF TYLENOL 4 TO 5 TIMES A DAY (DOSE OF 4 TO 6 GRAMS A DAY)
     Route: 048
     Dates: start: 20100720, end: 20120720
  3. TYLENOL REGULAR STRENGTH [Suspect]
     Active Substance: ACETAMINOPHEN
     Indication: MIGRAINE
     Dosage: 3 TO 4 PILLS OF 325 MG OF TYLENOL 4 TO 5 TIMES A DAY (DOSE OF 4 TO 6 GRAMS A DAY)
     Route: 048
     Dates: start: 20100720, end: 20120720

REACTIONS (4)
  - Hepatitis toxic [Unknown]
  - Hypophosphataemia [Unknown]
  - Acute hepatic failure [Unknown]
  - Hypokalaemia [Unknown]

NARRATIVE: CASE EVENT DATE: 201207
